FAERS Safety Report 9967854 (Version 1)
Quarter: 2014Q1

REPORT INFORMATION
  Report Type: Report from Study
  Country: None (occurrence: US)
  Receive Date: 20140306
  Receipt Date: 20140306
  Transmission Date: 20141002
  Serious: No
  Sender: FDA-Public Use
  Company Number: US-ABBVIE-13P-163-1147462-00

PATIENT
  Age: 67 Year
  Sex: Female
  Weight: 46.31 kg

DRUGS (9)
  1. HUMIRA [Suspect]
     Indication: RHEUMATOID ARTHRITIS
     Route: 058
     Dates: start: 2006
  2. GABAPENTIN [Suspect]
     Indication: RESTLESS LEGS SYNDROME
     Dates: end: 20130910
  3. PREDNISONE [Concomitant]
     Indication: RHEUMATOID ARTHRITIS
  4. METHOTREXATE [Concomitant]
     Indication: RHEUMATOID ARTHRITIS
  5. CRESTOR [Concomitant]
     Indication: BLOOD CHOLESTEROL INCREASED
  6. UNKNOWN MEDICATION [Concomitant]
     Indication: BLOOD TRIGLYCERIDES INCREASED
  7. UNKNOWN MEDICATION [Concomitant]
     Indication: HYPERTENSION
  8. PLAVIX [Concomitant]
     Indication: ANTICOAGULANT THERAPY
  9. NITROGLYCERINE [Concomitant]
     Indication: CHEST PAIN

REACTIONS (2)
  - Dyskinesia [Recovered/Resolved]
  - Tremor [Recovered/Resolved]
